FAERS Safety Report 25429360 (Version 1)
Quarter: 2025Q2

REPORT INFORMATION
  Report Type: Spontaneous
  Country: US (occurrence: None)
  Receive Date: 20250611
  Receipt Date: 20250611
  Transmission Date: 20250716
  Serious: Yes (Other)
  Sender: FDA-CTU
  Company Number: None

PATIENT
  Sex: Female

DRUGS (1)
  1. UNSPECIFIED INGREDIENT [Suspect]
     Active Substance: UNSPECIFIED INGREDIENT
     Route: 058
     Dates: start: 20250420

REACTIONS (4)
  - Manufacturing laboratory analytical testing issue [None]
  - Wrong technique in product usage process [None]
  - Product prescribing issue [None]
  - Issue with additional condition for nonprescription use [None]
